FAERS Safety Report 22116126 (Version 1)
Quarter: 2023Q1

REPORT INFORMATION
  Report Type: Spontaneous
  Country: JP (occurrence: JP)
  Receive Date: 20230320
  Receipt Date: 20230320
  Transmission Date: 20230418
  Serious: Yes (Other)
  Sender: FDA-Public Use
  Company Number: JP-ONO-2023JP005644

PATIENT

DRUGS (2)
  1. ONGENTYS [Suspect]
     Active Substance: OPICAPONE
     Indication: Parkinson^s disease
     Dosage: 25 MILLIGRAM, UNKNOWN
     Route: 048
  2. LEVODOPA [Concomitant]
     Active Substance: LEVODOPA
     Dosage: FIVE TIMES A DAY
     Route: 048

REACTIONS (1)
  - Sudden onset of sleep [Recovered/Resolved]
